FAERS Safety Report 9263638 (Version 1)
Quarter: 2013Q2

REPORT INFORMATION
  Report Type: Spontaneous
  Country: US (occurrence: US)
  Receive Date: 20130430
  Receipt Date: 20130430
  Transmission Date: 20140414
  Serious: No
  Sender: FDA-Public Use
  Company Number: US-COVIDIEN/TYCO HEALTHCARE/MALLINCKRODT-T201203885

PATIENT
  Age: 68 Year
  Sex: Male

DRUGS (3)
  1. METHYLIN EXTENDED-RELEASE [Suspect]
     Indication: ATTENTION DEFICIT/HYPERACTIVITY DISORDER
     Dosage: 20 MG QD
     Route: 048
     Dates: start: 20120825, end: 20120827
  2. XANAX [Concomitant]
     Indication: TINNITUS
     Dosage: 1.5 MG QD PRN
  3. OXYCODONE [Concomitant]
     Indication: PAIN
     Dosage: 30 MG QD

REACTIONS (4)
  - Ventricular extrasystoles [Recovered/Resolved]
  - Insomnia [Recovered/Resolved]
  - Blood pressure increased [Recovered/Resolved]
  - Heart rate increased [Recovered/Resolved]
